FAERS Safety Report 4372097-9 (Version None)
Quarter: 2004Q2

REPORT INFORMATION
  Report Type: 
  Country: None (occurrence: None)
  Receive Date: 20040607
  Receipt Date: 20020904
  Transmission Date: 20050107
  Serious: Yes (Hospitalization, Disabling)
  Sender: FDA-Public Use
  Company Number: US-MERCK-0209USA00437

PATIENT
  Age: 85 Year
  Sex: Female
  Weight: 48 kg

DRUGS (11)
  1. TYLENOL [Concomitant]
     Route: 065
     Dates: start: 19930101
  2. ATENOLOL [Concomitant]
     Route: 065
  3. CAPTOPRIL [Concomitant]
     Route: 065
  4. PREMPRO [Concomitant]
     Route: 065
  5. HYDRODIURIL [Concomitant]
     Route: 048
  6. HYDROXYCHLOROQUINE SULFATE [Concomitant]
     Route: 065
  7. CLARITIN [Concomitant]
     Route: 065
  8. POTASSIUM (UNSPECIFIED) [Concomitant]
     Route: 065
  9. VIOXX [Suspect]
     Indication: RHEUMATOID ARTHRITIS
     Route: 048
     Dates: start: 20000701, end: 20000801
  10. SALSALATE [Concomitant]
     Route: 065
  11. SULFASALAZINE [Concomitant]
     Route: 065

REACTIONS (32)
  - ANAEMIA [None]
  - ATRIAL FIBRILLATION [None]
  - AZOTAEMIA [None]
  - CELLULITIS [None]
  - CEREBROVASCULAR ACCIDENT [None]
  - CHOLELITHIASIS [None]
  - CHRONIC SINUSITIS [None]
  - COMPLEX PARTIAL SEIZURES [None]
  - CONTUSION [None]
  - DEHYDRATION [None]
  - DRUG LEVEL FLUCTUATING [None]
  - EPISTAXIS [None]
  - EXOSTOSIS [None]
  - FALL [None]
  - FEMORAL NECK FRACTURE [None]
  - GASTRITIS ATROPHIC [None]
  - GASTROOESOPHAGEAL REFLUX DISEASE [None]
  - GOITRE [None]
  - GRAND MAL CONVULSION [None]
  - HAEMORRHOIDS [None]
  - HYPOKALAEMIA [None]
  - HYPONATRAEMIA [None]
  - MALNUTRITION [None]
  - OESOPHAGITIS [None]
  - PLEURAL EFFUSION [None]
  - PNEUMONIA ASPIRATION [None]
  - PYELONEPHRITIS [None]
  - RECTAL ULCER [None]
  - REFLUX GASTRITIS [None]
  - STAPHYLOCOCCAL INFECTION [None]
  - URINARY TRACT INFECTION [None]
  - VAGINAL HAEMORRHAGE [None]
